FAERS Safety Report 8904526 (Version 1)
Quarter: 2012Q4

REPORT INFORMATION
  Report Type: 
  Country: DE (occurrence: DE)
  Receive Date: 20121113
  Receipt Date: 20121113
  Transmission Date: 20130627
  Serious: Yes (Other)
  Sender: FDA-Public Use
  Company Number: DE-CELGENEUS-062-50794-12101529

PATIENT
  Sex: Female

DRUGS (5)
  1. VIDAZA [Suspect]
     Indication: ACUTE MYELOID LEUKEMIA
     Dosage: 75 milligram/sq. meter
     Route: 041
  2. VIDAZA [Suspect]
     Dosage: 75 milligram/sq. meter
     Route: 058
  3. CYTARABINE [Suspect]
     Indication: ACUTE MYELOID LEUKEMIA
     Dosage: 100 milligram/sq. meter
     Route: 041
  4. CYTARABINE [Suspect]
     Dosage: 1 g/sqm
     Route: 041
  5. DAUNORUBICIN [Suspect]
     Indication: ACUTE MYELOID LEUKEMIA
     Dosage: 45 milligram/sq. meter
     Route: 041

REACTIONS (23)
  - Thrombophlebitis [Unknown]
  - Leukocytoclastic vasculitis [Unknown]
  - Flatulence [Unknown]
  - Dry eye [Unknown]
  - Nasal dryness [Unknown]
  - Chills [Unknown]
  - Haemorrhoids [Unknown]
  - Epistaxis [Unknown]
  - Pyrexia [Unknown]
  - Perichondritis [Unknown]
  - Petechiae [Unknown]
  - Rash [Unknown]
  - Pruritus [Unknown]
  - Oedema peripheral [Unknown]
  - Hypotension [Unknown]
  - Chest pain [Unknown]
  - Diarrhoea [Unknown]
  - Vomiting [Unknown]
  - Constipation [Unknown]
  - Abdominal pain [Unknown]
  - Bone pain [Unknown]
  - Pain in extremity [Unknown]
  - Headache [Unknown]
